FAERS Safety Report 20082981 (Version 1)
Quarter: 2021Q4

REPORT INFORMATION
  Report Type: Spontaneous
  Country: DE (occurrence: DE)
  Receive Date: 20211117
  Receipt Date: 20211117
  Transmission Date: 20220303
  Serious: Yes (Hospitalization, Other)
  Sender: FDA-Public Use
  Company Number: DE-ADRED-07132-01

PATIENT
  Age: 53 Year
  Sex: Female
  Weight: 56 kg

DRUGS (8)
  1. AMLODIPINE [Suspect]
     Active Substance: AMLODIPINE BESYLATE
     Indication: Product used for unknown indication
     Dosage: 5 MG, 1-0-1-0
  2. RAMIPRIL [Suspect]
     Active Substance: RAMIPRIL
     Indication: Product used for unknown indication
     Dosage: 5 MG, 1-0-1-0
  3. HYDROCHLOROTHIAZIDE [Suspect]
     Active Substance: HYDROCHLOROTHIAZIDE
     Indication: Product used for unknown indication
     Dosage: 25 MG, 1-0-0-0
  4. PANTOPRAZOLE [Concomitant]
     Active Substance: PANTOPRAZOLE
     Dosage: 20 MG, 1-0-0-0
  5. MAGNESIUM [Concomitant]
     Active Substance: MAGNESIUM
     Dosage: UNK, BID
  6. PREGABALIN [Concomitant]
     Active Substance: PREGABALIN
     Dosage: 25 MG, 1-0-1-0
  7. VENLAFAXINE HYDROCHLORIDE [Concomitant]
     Active Substance: VENLAFAXINE HYDROCHLORIDE
     Dosage: 75 MG, 1-0-0-0
  8. LACTULOSE [Concomitant]
     Active Substance: LACTULOSE
     Dosage: UNK, SCHEMA

REACTIONS (8)
  - Systemic infection [Unknown]
  - Loss of consciousness [Unknown]
  - Electrocardiogram abnormal [Unknown]
  - Acute respiratory failure [Unknown]
  - Apnoea [Unknown]
  - Hypotension [Unknown]
  - Renal impairment [Unknown]
  - Bradycardia [Unknown]

NARRATIVE: CASE EVENT DATE: 20210101
